FAERS Safety Report 5597145-X (Version None)
Quarter: 2008Q1

REPORT INFORMATION
  Report Type: 
  Country: None (occurrence: None)
  Receive Date: 20080121
  Receipt Date: 20080110
  Transmission Date: 20080703
  Serious: Yes (Death, Life-Threatening, Hospitalization, Disabling)
  Sender: FDA-Public Use
  Company Number: PHHO2007US20568

PATIENT
  Sex: Female

DRUGS (2)
  1. LOTREL [Suspect]
     Indication: HYPERTENSION
     Dosage: LEVEL 1
     Route: 048
     Dates: start: 20040319
  2. LOTREL [Suspect]
     Dosage: LEVEL 3
     Route: 048
     Dates: end: 20071001

REACTIONS (10)
  - ANAEMIA [None]
  - ATRIAL FIBRILLATION [None]
  - CARDIOMYOPATHY [None]
  - CHRONIC OBSTRUCTIVE PULMONARY DISEASE [None]
  - DEEP VEIN THROMBOSIS [None]
  - DEMENTIA [None]
  - DISEASE PROGRESSION [None]
  - DYSPNOEA [None]
  - PEMPHIGUS [None]
  - RENAL FAILURE [None]
